FAERS Safety Report 9296058 (Version 1)
Quarter: 2013Q2

REPORT INFORMATION
  Report Type: Spontaneous
  Country: CA (occurrence: None)
  Receive Date: 20130514
  Receipt Date: 20130514
  Transmission Date: 20140414
  Serious: Yes (Other)
  Sender: FDA-Public Use
  Company Number: 1709439

PATIENT
  Age: 62 Year
  Sex: Female

DRUGS (1)
  1. (PROPOFOL) [Suspect]
     Indication: ANAESTHESIA
     Route: 041

REACTIONS (7)
  - Stress cardiomyopathy [None]
  - Encephalopathy [None]
  - Cardiac failure congestive [None]
  - Renal failure acute [None]
  - Dysarthria [None]
  - Muscular weakness [None]
  - Mitochondrial myopathy [None]
